FAERS Safety Report 19959867 (Version 1)
Quarter: 2021Q4

REPORT INFORMATION
  Report Type: Report from Study
  Country: EG (occurrence: EG)
  Receive Date: 20211015
  Receipt Date: 20211015
  Transmission Date: 20220303
  Serious: Yes (Other)
  Sender: FDA-Public Use
  Company Number: EG-NOVARTISPH-NVSC2021EG223281

PATIENT
  Age: 22 Year
  Sex: Female

DRUGS (5)
  1. GILENYA [Suspect]
     Active Substance: FINGOLIMOD HYDROCHLORIDE
     Indication: Multiple sclerosis
     Dosage: 0.5 MG, QD
     Route: 048
     Dates: start: 20201101, end: 20210825
  2. GILENYA [Suspect]
     Active Substance: FINGOLIMOD HYDROCHLORIDE
     Dosage: 0.5 UNK
     Route: 065
  3. .ALPHA.-LIPOIC ACID [Concomitant]
     Active Substance: .ALPHA.-LIPOIC ACID
     Indication: Optic nerve injury
     Dosage: 1 DF, QD, (BEFORE BREAKFAST)
     Route: 048
     Dates: start: 202011
  4. VIDROP [Concomitant]
     Indication: Vitamin D deficiency
     Dosage: ONE BOTTLE PER WEEK OR HALF BOTTLE PER WEEK
     Route: 048
  5. PANADOL [Concomitant]
     Active Substance: ACETAMINOPHEN
     Indication: Analgesic therapy
     Dosage: 2 DF, QD
     Route: 065
     Dates: start: 20211003

REACTIONS (9)
  - Hypoaesthesia [Recovered/Resolved]
  - Memory impairment [Recovering/Resolving]
  - Limb discomfort [Not Recovered/Not Resolved]
  - Hypoaesthesia [Unknown]
  - Hypoaesthesia oral [Unknown]
  - Discomfort [Unknown]
  - Memory impairment [Unknown]
  - Product dispensing error [Unknown]
  - Inappropriate schedule of product administration [Unknown]

NARRATIVE: CASE EVENT DATE: 20210815
